FAERS Safety Report 5367880-7 (Version None)
Quarter: 2007Q2

REPORT INFORMATION
  Report Type: 
  Country: None (occurrence: None)
  Receive Date: 20070622
  Receipt Date: 20070613
  Transmission Date: 20071010
  Serious: Yes (Other)
  Sender: FDA-Public Use
  Company Number: US-AMGEN-US229427

PATIENT
  Sex: Female

DRUGS (2)
  1. PROCRIT [Suspect]
     Indication: ANAEMIA
     Dates: start: 20061201, end: 20070515
  2. ATENOLOL [Concomitant]

REACTIONS (1)
  - APLASIA PURE RED CELL [None]
